FAERS Safety Report 20656310 (Version 1)
Quarter: 2022Q1

REPORT INFORMATION
  Report Type: Spontaneous
  Country: US (occurrence: US)
  Receive Date: 20220331
  Receipt Date: 20220331
  Transmission Date: 20220423
  Serious: Yes (Other)
  Sender: FDA-Public Use
  Company Number: US-CELLTRION INC.-2022US003331

PATIENT

DRUGS (2)
  1. TRUXIMA [Suspect]
     Active Substance: RITUXIMAB-ABBS
     Indication: Hairy cell leukaemia
     Dosage: 800 MG EVERY 7 DAYS
     Dates: start: 20220304
  2. TRUXIMA [Suspect]
     Active Substance: RITUXIMAB-ABBS
     Dosage: 800 MG (FINAL TREATMENT)
     Dates: start: 20220311

REACTIONS (3)
  - Hairy cell leukaemia [Unknown]
  - Drug effective for unapproved indication [Unknown]
  - Off label use [Unknown]
